FAERS Safety Report 18117264 (Version 1)
Quarter: 2020Q3

REPORT INFORMATION
  Report Type: Spontaneous
  Country: CA (occurrence: CA)
  Receive Date: 20200806
  Receipt Date: 20200806
  Transmission Date: 20201103
  Serious: Yes (Hospitalization)
  Sender: FDA-Public Use
  Company Number: CA-009507513-2008CAN001423

PATIENT
  Age: 63 Year
  Sex: Female

DRUGS (12)
  1. LINEZOLID. [Concomitant]
     Active Substance: LINEZOLID
     Route: 065
  2. CALCIUM CITRATE [Concomitant]
     Active Substance: CALCIUM CITRATE
     Dosage: DOSAGE FORM: NOT SPECIFIED
     Route: 065
  3. FLUCONAZOLE. [Concomitant]
     Active Substance: FLUCONAZOLE
     Dosage: DOSAGE FORM: NOT SPECIFIED
     Route: 065
  4. MAGNESIUM (UNSPECIFIED) [Concomitant]
     Active Substance: MAGNESIUM
     Dosage: DOSAGE FORM: NOT SPECIFIED
     Route: 065
  5. SEPTRA [Concomitant]
     Active Substance: SULFAMETHOXAZOLE\TRIMETHOPRIM
     Route: 065
  6. PRIMAXIN IV [Suspect]
     Active Substance: CILASTATIN SODIUM\IMIPENEM
     Indication: MYCOBACTERIUM ABSCESSUS INFECTION
     Dosage: DOSAGE FORM: POWDER FOR SOLUTION INTRAVENOUS; ROUTE: INTRAVENOUS DRIP
     Route: 041
  7. MYCOPHENOLATE MOFETIL. [Concomitant]
     Active Substance: MYCOPHENOLATE MOFETIL
     Dosage: DOSAGE FORM: NOT SPECIFIED
     Route: 065
  8. PREDNISONE. [Concomitant]
     Active Substance: PREDNISONE
     Dosage: DOSAGE FROM: NOT SPECIFIED
     Route: 065
  9. TACROLIMUS. [Concomitant]
     Active Substance: TACROLIMUS
     Route: 065
  10. ENOXAPARIN SODIUM. [Concomitant]
     Active Substance: ENOXAPARIN SODIUM
     Route: 065
  11. GANCICLOVIR. [Concomitant]
     Active Substance: GANCICLOVIR
     Dosage: DOSAGE FORM: POWDER FOR SOLUTION INTRAVENOUS
     Route: 065
  12. AZITHROMYCIN ANHYDROUS. [Concomitant]
     Active Substance: AZITHROMYCIN ANHYDROUS
     Dosage: DOSAGE FORM: NOT SPECIFIED
     Route: 065

REACTIONS (4)
  - Dehydration [Unknown]
  - Blood creatinine increased [Unknown]
  - Nausea [Unknown]
  - Vomiting [Unknown]
